FAERS Safety Report 12111050 (Version 12)
Quarter: 2020Q3

REPORT INFORMATION
  Report Type: Report from Study
  Country: GB (occurrence: GB)
  Receive Date: 20160224
  Receipt Date: 20170818
  Transmission Date: 20201104
  Serious: Yes (Hospitalization, Other)
  Sender: FDA-Public Use
  Company Number: GB-JNJFOC-20160217995

PATIENT
  Age: 50 Year
  Sex: Male
  Weight: 76 kg

DRUGS (34)
  1. MUPIROCIN. [Concomitant]
     Active Substance: MUPIROCIN
     Indication: STAPHYLOCOCCUS TEST
     Route: 045
  2. IBRUTINIB [Suspect]
     Active Substance: IBRUTINIB
     Indication: NON-HODGKIN^S LYMPHOMA
     Route: 048
     Dates: start: 20160603, end: 20160630
  3. IBRUTINIB [Suspect]
     Active Substance: IBRUTINIB
     Indication: NON-HODGKIN^S LYMPHOMA
     Route: 048
     Dates: start: 20150729
  4. IBRUTINIB [Suspect]
     Active Substance: IBRUTINIB
     Indication: NON-HODGKIN^S LYMPHOMA
     Route: 048
     Dates: start: 2016, end: 2016
  5. FILGRASTIM [Concomitant]
     Active Substance: FILGRASTIM
     Indication: NEUTROPENIA
     Route: 058
  6. MORPHINE [Concomitant]
     Active Substance: MORPHINE
     Route: 042
  7. CIPROFLOXACIN. [Concomitant]
     Active Substance: CIPROFLOXACIN
     Indication: ORCHITIS
     Route: 048
  8. COTRIMOXAZOLE [Concomitant]
     Active Substance: SULFAMETHOXAZOLE\TRIMETHOPRIM
     Dosage: ON MONDAY/WEDNESDAY/FRIDAY
     Route: 048
     Dates: start: 20150729
  9. CHLORHEXIDINE [Concomitant]
     Active Substance: CHLORHEXIDINE
     Indication: STAPHYLOCOCCUS TEST
     Route: 050
  10. RITUXIMAB. [Suspect]
     Active Substance: RITUXIMAB
     Indication: NON-HODGKIN^S LYMPHOMA
     Route: 042
     Dates: start: 20150729, end: 20151216
  11. ACYCLOVIR. [Concomitant]
     Active Substance: ACYCLOVIR
     Route: 048
     Dates: start: 20150729
  12. METOCLOPRAMIDE. [Concomitant]
     Active Substance: METOCLOPRAMIDE
     Route: 048
  13. SIMPLE LINCTUS [Concomitant]
     Active Substance: AMARANTH\CHLOROFORM\CITRIC ACID MONOHYDRATE\PIMPINELLA ANISUM WHOLE
     Route: 048
     Dates: start: 20151030
  14. OXYBUTININE [Concomitant]
     Active Substance: OXYBUTYNIN
     Indication: CYSTITIS NONINFECTIVE
     Route: 048
     Dates: start: 20160114, end: 20160205
  15. PREDNISOLONE. [Concomitant]
     Active Substance: PREDNISOLONE
     Indication: COUGH
     Route: 048
  16. FILGRASTIM [Concomitant]
     Active Substance: FILGRASTIM
     Indication: NEUTROPENIA
     Route: 058
  17. CHLORHEXIDINE [Concomitant]
     Active Substance: CHLORHEXIDINE
     Indication: STAPHYLOCOCCUS TEST
     Route: 061
  18. MOVICOL [Concomitant]
     Active Substance: POLYETHYLENE GLYCOL 3350\POTASSIUM CHLORIDE\SODIUM BICARBONATE\SODIUM CHLORIDE
     Route: 048
  19. PARACETAMOL [Concomitant]
     Active Substance: ACETAMINOPHEN
     Indication: ORCHITIS
     Route: 048
  20. ONDANSETRON [Concomitant]
     Active Substance: ONDANSETRON
  21. IBRUTINIB [Suspect]
     Active Substance: IBRUTINIB
     Indication: NON-HODGKIN^S LYMPHOMA
     Route: 048
     Dates: start: 20160114, end: 20160204
  22. BENDAMUSTINE [Suspect]
     Active Substance: BENDAMUSTINE
     Indication: NON-HODGKIN^S LYMPHOMA
     Route: 042
     Dates: start: 20150729, end: 20151216
  23. PARACETAMOL [Concomitant]
     Active Substance: ACETAMINOPHEN
     Indication: ORCHITIS
     Route: 048
  24. CANESTEN [Concomitant]
     Active Substance: CLOTRIMAZOLE
     Indication: SKIN INFECTION
     Route: 061
  25. SALBUTAMOL [Concomitant]
     Active Substance: ALBUTEROL
     Route: 050
  26. FOLINIC ACID [Concomitant]
     Active Substance: LEUCOVORIN
  27. HYDROCORTISONE. [Concomitant]
     Active Substance: HYDROCORTISONE
     Route: 042
  28. CHLORPHENIRAMINE. [Concomitant]
     Active Substance: CHLORPHENIRAMINE
     Route: 042
  29. ALLOPURINOL. [Concomitant]
     Active Substance: ALLOPURINOL
     Route: 048
  30. FUROSEMIDE. [Concomitant]
     Active Substance: FUROSEMIDE
     Route: 048
  31. GAMMAPLEX [Concomitant]
     Active Substance: HUMAN IMMUNOGLOBULIN G
     Route: 042
  32. METOCLOPRAMIDE. [Concomitant]
     Active Substance: METOCLOPRAMIDE
     Route: 048
     Dates: start: 20150729
  33. IBUPROFEN. [Concomitant]
     Active Substance: IBUPROFEN
     Route: 065
  34. PARECOXIB [Concomitant]
     Active Substance: PARECOXIB
     Route: 042

REACTIONS (4)
  - Orchitis [Recovered/Resolved]
  - Pelvic abscess [Recovered/Resolved]
  - Cystitis noninfective [Not Recovered/Not Resolved]
  - Infectious pleural effusion [Recovered/Resolved]

NARRATIVE: CASE EVENT DATE: 20160204
